FAERS Safety Report 6424534-3 (Version None)
Quarter: 2009Q4

REPORT INFORMATION
  Report Type: 
  Country: None (occurrence: None)
  Receive Date: 20091029
  Receipt Date: 20091021
  Transmission Date: 20100525
  Serious: Yes (Hospitalization)
  Sender: FDA-Public Use
  Company Number: 2009JP006288

PATIENT
  Age: 73 Year
  Sex: Female

DRUGS (4)
  1. VESICARE [Suspect]
     Indication: POLLAKIURIA
     Dosage: 5MG, ORAL
     Route: 048
     Dates: start: 20090909, end: 20091009
  2. SEROQUEL [Concomitant]
  3. ARICEPT [Concomitant]
  4. TRAZODONE HCL [Concomitant]

REACTIONS (2)
  - LACUNAR INFARCTION [None]
  - URINARY RETENTION [None]
